FAERS Safety Report 9196346 (Version 1)
Quarter: 2013Q1

REPORT INFORMATION
  Report Type: Spontaneous
  Country: US (occurrence: None)
  Receive Date: 20130326
  Receipt Date: 20130326
  Transmission Date: 20140127
  Serious: Yes (Life-Threatening, Hospitalization, Other)
  Sender: FDA-Public Use
  Company Number: 2013P1003271

PATIENT
  Age: 22 Year
  Sex: Male
  Weight: 55.9 kg

DRUGS (32)
  1. FENTANYL CITRATE [Suspect]
     Indication: SEDATION
     Dosage: ; IV?03/10/2013  -  03/11/2013
     Route: 042
     Dates: start: 20130310, end: 20130311
  2. FENTANYL CITRATE [Suspect]
     Indication: ANALGESIC THERAPY
     Dosage: ; IV?03/10/2013  -  03/11/2013
     Route: 042
     Dates: start: 20130310, end: 20130311
  3. APAP [Concomitant]
  4. AMLODIPINE BESYLATE [Concomitant]
  5. BUPRENORPHINE [Concomitant]
  6. D5  1/2  NS DRIP [Concomitant]
  7. DEXTROSE [Concomitant]
  8. FAMOTIDINE [Concomitant]
  9. GABAPENTIN [Concomitant]
  10. HYDROMORPHONE [Concomitant]
  11. IBUPROFEN [Concomitant]
  12. INSULIN ASPART SLIDING SCALE [Concomitant]
  13. INSULIN GLARGINE [Concomitant]
  14. INSULIN REGULAR [Concomitant]
  15. DUONEB [Concomitant]
  16. KETOROLAC TROMETHAMINE [Concomitant]
  17. VIAL [Concomitant]
  18. LEVETIRACETAM [Concomitant]
  19. LORAZEPAM [Concomitant]
  20. MAGNESIUM SULFATE [Concomitant]
  21. METOCLOPRAMIDE [Concomitant]
  22. METRONIDAZOLE [Concomitant]
  23. NOREPINEHRINE [Concomitant]
  24. ONDANSETRON [Concomitant]
  25. PANTOPRAZOLE [Concomitant]
  26. PHENYLEPHRINE [Concomitant]
  27. PIP / TAZO [Concomitant]
  28. KCL [Concomitant]
  29. PROCHLORPERAZINE [Concomitant]
  30. SODIUM CHLORIDE [Concomitant]
  31. VANCOMYCIN [Concomitant]
  32. VASOPRESSIN [Concomitant]

REACTIONS (2)
  - Product contamination [None]
  - Hyperthermia [None]
